FAERS Safety Report 5608946-3 (Version None)
Quarter: 2008Q1

REPORT INFORMATION
  Report Type: 
  Country: None (occurrence: None)
  Receive Date: 20080129
  Receipt Date: 20080129
  Transmission Date: 20080703
  Serious: Yes (Other)
  Sender: FDA-Public Use
  Company Number: None

PATIENT
  Age: 8 Year
  Sex: Female
  Weight: 23.1334 kg

DRUGS (1)
  1. ZYRTEC [Suspect]
     Indication: MULTIPLE ALLERGIES
     Dosage: 7.5 MG  ONCE DAILY
     Dates: start: 20020423, end: 20071120

REACTIONS (8)
  - AGGRESSION [None]
  - DEPRESSION [None]
  - HALLUCINATION [None]
  - LEARNING DISORDER [None]
  - PARANOIA [None]
  - PRURITUS [None]
  - TIC [None]
  - WOUND [None]
